FAERS Safety Report 8913501 (Version 1)
Quarter: 2012Q4

REPORT INFORMATION
  Report Type: 
  Country: GB (occurrence: GB)
  Receive Date: 20121119
  Receipt Date: 20121119
  Transmission Date: 20130627
  Serious: Yes (Other)
  Sender: FDA-Public Use
  Company Number: GB-JNJFOC-20121106826

PATIENT
  Age: 63 Year
  Sex: Male

DRUGS (13)
  1. PALEXIA [Suspect]
     Indication: PAIN
     Route: 048
     Dates: start: 20121001, end: 20121003
  2. ASPIRIN [Concomitant]
     Indication: PRODUCT USED FOR UNKNOWN INDICATION
     Route: 065
     Dates: start: 20030326
  3. FOLIC ACID [Concomitant]
     Route: 065
     Dates: start: 20021030
  4. GLYCERYL TRINITRATE [Concomitant]
     Route: 065
     Dates: start: 20030926
  5. PARACETAMOL [Concomitant]
     Dosage: 2 tablets 4 hourly
     Route: 065
     Dates: start: 20010829
  6. LOFEPRAMINE [Concomitant]
     Route: 048
     Dates: start: 20120427
  7. PEPTAC PEPPERMINT [Concomitant]
     Indication: PRODUCT USED FOR UNKNOWN INDICATION
     Route: 065
     Dates: start: 20111124
  8. METOPROLOL [Concomitant]
     Route: 065
     Dates: start: 20031107
  9. CARBAMAZEPINE [Concomitant]
     Route: 048
     Dates: start: 20100707
  10. ORAMORPH [Concomitant]
     Indication: PAIN
     Route: 048
     Dates: start: 20090730
  11. ISOSORBIDE MONONITRATE [Concomitant]
     Route: 065
     Dates: start: 20040819
  12. ZOMORPH [Concomitant]
     Indication: PAIN
     Route: 048
     Dates: start: 20100430
  13. TESTOGEL [Concomitant]
     Route: 065
     Dates: start: 20120427

REACTIONS (4)
  - Diarrhoea [Recovered/Resolved]
  - Agitation [Recovered/Resolved]
  - Aggression [Recovered/Resolved]
  - Hyperhidrosis [Recovered/Resolved]
